FAERS Safety Report 8416640-9 (Version None)
Quarter: 2012Q2

REPORT INFORMATION
  Report Type: 
  Country: None (occurrence: None)
  Receive Date: 20120323
  Receipt Date: 20111123
  Transmission Date: 20120825
  Serious: Yes (Other)
  Sender: FDA-Public Use
  Company Number: 163-21880-11021954

PATIENT
  Age: 58 Year
  Sex: Female

DRUGS (7)
  1. VELCADE [Suspect]
     Indication: PRODUCT USED FOR UNKNOWN INDICATION
     Dosage: 25 MG
  2. REVLIMID [Suspect]
     Indication: MULTIPLE MYELOMA
     Dosage: PO ; 15 MG, PO ; 5 MG, DAILY 21/28, PO
     Route: 048
     Dates: start: 20090501
  3. REVLIMID [Suspect]
     Indication: MULTIPLE MYELOMA
     Dosage: PO ; 15 MG, PO ; 5 MG, DAILY 21/28, PO
     Route: 048
     Dates: start: 20110406
  4. REVLIMID [Suspect]
  5. DEXAMETHASONE [Suspect]
     Indication: PRODUCT USED FOR UNKNOWN INDICATION
  6. ACYCLOVIR [Concomitant]
  7. LEVOXYL [Concomitant]

REACTIONS (1)
  - WHITE BLOOD CELL COUNT DECREASED [None]
